FAERS Safety Report 8308396-5 (Version None)
Quarter: 2012Q2

REPORT INFORMATION
  Report Type: 
  Country: None (occurrence: None)
  Receive Date: 20120424
  Receipt Date: 20120420
  Transmission Date: 20120825
  Serious: Yes (Other)
  Sender: FDA-Public Use
  Company Number: US-MERCK-1204USA03122

PATIENT
  Sex: Female

DRUGS (4)
  1. FOSAMAX [Suspect]
     Indication: OSTEOPOROSIS
     Route: 048
     Dates: start: 20030101, end: 20110101
  2. BONIVA [Suspect]
     Indication: OSTEOPOROSIS
     Route: 065
     Dates: start: 20080101, end: 20110101
  3. BONIVA [Suspect]
     Indication: OSTEOPENIA
     Route: 065
     Dates: start: 20080101, end: 20110101
  4. FOSAMAX [Suspect]
     Indication: OSTEOPENIA
     Route: 048
     Dates: start: 20030101, end: 20110101

REACTIONS (2)
  - LOW TURNOVER OSTEOPATHY [None]
  - FEMUR FRACTURE [None]
